FAERS Safety Report 7829448-X (Version None)
Quarter: 2011Q4

REPORT INFORMATION
  Report Type: 
  Country: None (occurrence: None)
  Receive Date: 20111020
  Receipt Date: 20111011
  Transmission Date: 20120403
  Serious: Yes (Other)
  Sender: FDA-Public Use
  Company Number: US-ASTRAZENECA-2011SE61348

PATIENT
  Age: 56 Year
  Sex: Female
  Weight: 95.3 kg

DRUGS (6)
  1. ACIPHEX [Concomitant]
  2. NEXIUM [Suspect]
     Indication: GASTROOESOPHAGEAL REFLUX DISEASE
     Route: 048
  3. PRILOSEC [Suspect]
     Indication: GASTROOESOPHAGEAL REFLUX DISEASE
     Route: 048
  4. PROTONIX [Concomitant]
  5. ZESTORETIC [Suspect]
     Indication: HYPERTENSION
     Route: 048
  6. LISINOPRIL [Suspect]
     Route: 048

REACTIONS (5)
  - CEREBROVASCULAR ACCIDENT [None]
  - DRUG HYPERSENSITIVITY [None]
  - DRUG INEFFECTIVE [None]
  - DIABETES MELLITUS [None]
  - ABDOMINAL PAIN UPPER [None]
